FAERS Safety Report 8542385-0 (Version None)
Quarter: 2012Q3

REPORT INFORMATION
  Report Type: 
  Country: None (occurrence: None)
  Receive Date: 20120726
  Receipt Date: 20111201
  Transmission Date: 20120928
  Serious: Yes (Hospitalization)
  Sender: FDA-Public Use
  Company Number: US-ASTRAZENECA-2011SE59950

PATIENT
  Age: 52 Year
  Sex: Female
  Weight: 49.9 kg

DRUGS (7)
  1. SEROQUEL [Suspect]
     Dosage: TWO HALF TABLETS EVERY DAY
     Route: 048
  2. ZOLOFT [Concomitant]
  3. NEURONTIN [Concomitant]
  4. PROPRANOLOL [Concomitant]
  5. SEROQUEL [Suspect]
     Indication: BIPOLAR DISORDER
     Dosage: 100 MG, THREE TIMES A DAY
     Route: 048
  6. TIZANIDINE HYDROCHLORIDE [Concomitant]
  7. CELEXA [Concomitant]

REACTIONS (6)
  - MANIA [None]
  - INFLUENZA [None]
  - WEIGHT DECREASED [None]
  - DRUG INEFFECTIVE [None]
  - MALAISE [None]
  - PANIC ATTACK [None]
